FAERS Safety Report 24559887 (Version 1)
Quarter: 2024Q4

REPORT INFORMATION
  Report Type: Spontaneous
  Country: US (occurrence: None)
  Receive Date: 20241028
  Receipt Date: 20241028
  Transmission Date: 20250115
  Serious: No
  Sender: Public
  Company Number: None

PATIENT
  Age: 58 Year
  Sex: Female

DRUGS (1)
  1. AMBRISENTAN [Suspect]
     Active Substance: AMBRISENTAN
     Indication: Pulmonary hypertension
     Dosage: FREQUENCY : DAILY;?
     Route: 048
     Dates: start: 20240729

REACTIONS (6)
  - Localised oedema [None]
  - Rash [None]
  - Rash erythematous [None]
  - Rash pruritic [None]
  - Tenderness [None]
  - Feeling hot [None]

NARRATIVE: CASE EVENT DATE: 20241028
